FAERS Safety Report 10191942 (Version 1)
Quarter: 2014Q2

REPORT INFORMATION
  Report Type: Spontaneous
  Country: US (occurrence: US)
  Receive Date: 20140523
  Receipt Date: 20140523
  Transmission Date: 20141212
  Serious: No
  Sender: FDA-Public Use
  Company Number: US-PFIZER INC-2014142125

PATIENT
  Age: 81 Year
  Sex: Female
  Weight: 87.1 kg

DRUGS (3)
  1. GABAPENTIN [Suspect]
     Indication: MUSCULOSKELETAL STIFFNESS
     Dosage: 300 MG, 3X/DAY
     Dates: start: 20140407, end: 201404
  2. GABAPENTIN [Suspect]
     Indication: PARAESTHESIA
  3. SYNTHROID [Concomitant]
     Indication: THYROID DISORDER
     Dosage: 75 UG, DAILY (IN THE MORNING)

REACTIONS (4)
  - Somnolence [Recovered/Resolved]
  - Gait disturbance [Recovered/Resolved]
  - Dizziness [Recovered/Resolved]
  - Peripheral swelling [Recovered/Resolved]
